FAERS Safety Report 4401157-9 (Version None)
Quarter: 2004Q3

REPORT INFORMATION
  Report Type: 
  Country: None (occurrence: None)
  Receive Date: 20040907
  Receipt Date: 20031124
  Transmission Date: 20050211
  Serious: No
  Sender: FDA-Public Use
  Company Number: US-BRISTOL-MYERS SQUIBB COMPANY-12442232

PATIENT
  Age: 50 Year
  Sex: Female
  Weight: 68 kg

DRUGS (9)
  1. COUMADIN [Suspect]
     Indication: HEART VALVE REPLACEMENT
     Route: 048
     Dates: start: 19840101
  2. CLARITIN [Concomitant]
  3. SINGULAIR [Concomitant]
  4. FORADIL [Concomitant]
  5. NEXIUM [Concomitant]
  6. MULTIVITAMIN [Concomitant]
  7. GLUCOSAMINE [Concomitant]
  8. CHONDROITIN [Concomitant]
  9. CALCIUM [Concomitant]

REACTIONS (2)
  - CONTUSION [None]
  - INTERNATIONAL NORMALISED RATIO INCREASED [None]
